FAERS Safety Report 12728266 (Version 1)
Quarter: 2016Q3

REPORT INFORMATION
  Report Type: Spontaneous
  Country: GB (occurrence: GB)
  Receive Date: 20160909
  Receipt Date: 20160909
  Transmission Date: 20161109
  Serious: Yes (Other)
  Sender: FDA-Public Use
  Company Number: GB-LEO PHARMA-243830

PATIENT
  Age: 65 Year
  Sex: Male
  Weight: 112.93 kg

DRUGS (1)
  1. PICATO [Suspect]
     Active Substance: INGENOL MEBUTATE
     Indication: PHOTODERMATOSIS
     Dosage: 150MCG/G GEL PER DAY OVER THREE DAYS.
     Route: 061
     Dates: start: 20160827

REACTIONS (1)
  - Application site haemorrhage [Not Recovered/Not Resolved]

NARRATIVE: CASE EVENT DATE: 20160829
